FAERS Safety Report 9455382 (Version 2)
Quarter: 2013Q4

REPORT INFORMATION
  Report Type: Report from Study
  Country: US (occurrence: US)
  Receive Date: 20130813
  Receipt Date: 20131003
  Transmission Date: 20140711
  Serious: Yes (Hospitalization, Other)
  Sender: FDA-Public Use
  Company Number: PHEH2013US016833

PATIENT
  Age: 44 Year
  Sex: Female
  Weight: 94.24 kg

DRUGS (2)
  1. TOBI PODHALER [Suspect]
     Indication: CYSTIC FIBROSIS
     Dosage: 112 MG, BID
     Dates: start: 201307
  2. TOBI PODHALER [Suspect]
     Dosage: UNK UKN, UNK

REACTIONS (2)
  - Infection [Recovering/Resolving]
  - Infective pulmonary exacerbation of cystic fibrosis [Unknown]
